FAERS Safety Report 24899439 (Version 1)
Quarter: 2025Q1

REPORT INFORMATION
  Report Type: Spontaneous
  Country: US (occurrence: US)
  Receive Date: 20250129
  Receipt Date: 20250129
  Transmission Date: 20250408
  Serious: Yes (Life-Threatening, Hospitalization)
  Sender: SANDOZ
  Company Number: US-MLMSERVICE-20250122-PI362464-00174-3

PATIENT
  Age: 17 Year
  Sex: Female

DRUGS (5)
  1. HALOPERIDOL [Suspect]
     Active Substance: HALOPERIDOL
     Indication: Cannabinoid hyperemesis syndrome
     Route: 042
  2. ONDANSETRON [Suspect]
     Active Substance: ONDANSETRON
     Indication: Cannabinoid hyperemesis syndrome
     Route: 042
  3. DIPHENHYDRAMINE [Concomitant]
     Active Substance: DIPHENHYDRAMINE
     Indication: Cannabinoid hyperemesis syndrome
     Route: 065
  4. LAMOTRIGINE [Concomitant]
     Active Substance: LAMOTRIGINE
     Indication: Anxiety
     Dosage: 150 MG, QD
     Route: 048
  5. SERTRALINE [Concomitant]
     Active Substance: SERTRALINE HYDROCHLORIDE
     Indication: Anxiety
     Dosage: 200 MG, QD
     Route: 048

REACTIONS (1)
  - Electrocardiogram QT prolonged [Unknown]
